FAERS Safety Report 15186724 (Version 2)
Quarter: 2019Q1

REPORT INFORMATION
  Report Type: Report from Study
  Country: US (occurrence: US)
  Receive Date: 20180723
  Receipt Date: 20190130
  Transmission Date: 20190417
  Serious: No
  Sender: FDA-Public Use
  Company Number: US-EXELIXIS-CABO-18012390

PATIENT
  Age: 59 Year
  Sex: Female

DRUGS (1)
  1. CABOMETYX [Suspect]
     Active Substance: CABOZANTINIB S-MALATE
     Indication: RENAL CANCER
     Dosage: 60 MG, QD
     Route: 048

REACTIONS (8)
  - Hypertension [Unknown]
  - Osteomyelitis [Unknown]
  - Jaw disorder [Unknown]
  - Hypothyroidism [Unknown]
  - Poor personal hygiene [Unknown]
  - Impaired healing [Unknown]
  - Exposed bone in jaw [Unknown]
  - Dental caries [Unknown]

NARRATIVE: CASE EVENT DATE: 20180207
